FAERS Safety Report 10384394 (Version 1)
Quarter: 2014Q3

REPORT INFORMATION
  Report Type: Spontaneous
  Country: US (occurrence: US)
  Receive Date: 20140814
  Receipt Date: 20140814
  Transmission Date: 20150326
  Serious: No
  Sender: FDA-Public Use
  Company Number: US-009507513-1408USA006742

PATIENT
  Sex: Male

DRUGS (2)
  1. RED YEAST [Suspect]
     Active Substance: YEAST
  2. ZETIA [Suspect]
     Active Substance: EZETIMIBE
     Indication: BLOOD CHOLESTEROL INCREASED
     Dosage: ONE TABLET ONCE DAILY
     Route: 048

REACTIONS (1)
  - Vision blurred [Unknown]
